FAERS Safety Report 6465892-3 (Version None)
Quarter: 2009Q4

REPORT INFORMATION
  Report Type: 
  Country: None (occurrence: None)
  Receive Date: 20091201
  Receipt Date: 20091130
  Transmission Date: 20100525
  Serious: Yes (Other)
  Sender: FDA-Public Use
  Company Number: US-ASTRAZENECA-2007UW12072

PATIENT
  Age: 19655 Day
  Sex: Male
  Weight: 120.7 kg

DRUGS (19)
  1. SEROQUEL [Suspect]
     Indication: BIPOLAR DISORDER
     Dosage: 100 MG- 200 MG
     Route: 048
     Dates: start: 20050728, end: 20060215
  2. SEROQUEL [Suspect]
     Indication: DEPRESSION
     Dosage: 100 MG- 200 MG
     Route: 048
     Dates: start: 20050728, end: 20060215
  3. SEROQUEL [Suspect]
     Indication: SLEEP DISORDER
     Dosage: 100 MG- 200 MG
     Route: 048
     Dates: start: 20050728, end: 20060215
  4. SEROQUEL [Suspect]
     Dosage: TOTAL DAILY DOSE 200 MG
     Route: 048
     Dates: start: 20051003, end: 20060315
  5. SEROQUEL [Suspect]
     Dosage: TOTAL DAILY DOSE 200 MG
     Route: 048
     Dates: start: 20051003, end: 20060315
  6. SEROQUEL [Suspect]
     Dosage: TOTAL DAILY DOSE 200 MG
     Route: 048
     Dates: start: 20051003, end: 20060315
  7. EFFEXOR XR [Concomitant]
  8. HYDROCODONE [Concomitant]
     Indication: PAIN
     Route: 048
  9. ASPIRIN [Concomitant]
     Indication: ANTICOAGULANT THERAPY
     Route: 048
  10. TOPROL-XL [Concomitant]
     Indication: BLOOD PRESSURE
  11. PLAVIX [Concomitant]
     Indication: PLATELET AGGREGATION
     Route: 048
  12. ZOCOR [Concomitant]
     Indication: HYPERCHOLESTEROLAEMIA
     Route: 048
  13. CYMBALTA [Concomitant]
     Indication: DEPRESSION
     Route: 048
  14. LISINOPRIL [Concomitant]
     Indication: BLOOD PRESSURE
     Route: 048
  15. TRAZODONE HCL [Concomitant]
     Indication: DEPRESSION
     Dosage: 100 MG- 150 MG
     Route: 048
  16. TRAZODONE HCL [Concomitant]
     Indication: SLEEP DISORDER
     Dosage: 100 MG- 150 MG
     Route: 048
  17. AMBIEN [Concomitant]
     Indication: SLEEP DISORDER
     Route: 048
  18. RESTORIL [Concomitant]
     Route: 048
  19. NEURONTIN [Concomitant]
     Route: 048

REACTIONS (5)
  - ARTHROPATHY [None]
  - NEUROPATHY PERIPHERAL [None]
  - PAIN IN EXTREMITY [None]
  - TYPE 2 DIABETES MELLITUS [None]
  - VISION BLURRED [None]
